FAERS Safety Report 14922482 (Version 3)
Quarter: 2018Q3

REPORT INFORMATION
  Report Type: Spontaneous
  Country: US (occurrence: US)
  Receive Date: 20180522
  Receipt Date: 20180820
  Transmission Date: 20181010
  Serious: No
  Sender: FDA-Public Use
  Company Number: US-PFIZER INC-2018207301

PATIENT
  Age: 14 Year
  Sex: Female
  Weight: 47.17 kg

DRUGS (2)
  1. GENOTROPIN [Suspect]
     Active Substance: SOMATROPIN
     Indication: GROWTH HORMONE DEFICIENCY
     Dosage: 2 MG, DAILY
     Route: 058
     Dates: start: 20140805
  2. GENOTROPIN [Suspect]
     Active Substance: SOMATROPIN
     Dosage: 2 MG, UNK
     Route: 058

REACTIONS (3)
  - Headache [Not Recovered/Not Resolved]
  - Drug dose omission [Unknown]
  - Device battery issue [Unknown]
